FAERS Safety Report 9386857 (Version 1)
Quarter: 2013Q3

REPORT INFORMATION
  Report Type: Spontaneous
  Country: US (occurrence: US)
  Receive Date: 20130708
  Receipt Date: 20130708
  Transmission Date: 20140515
  Serious: No
  Sender: FDA-Public Use
  Company Number: US-PFIZER INC-2013198388

PATIENT
  Age: 38 Year
  Sex: Female
  Weight: 60.32 kg

DRUGS (4)
  1. LYRICA [Suspect]
     Indication: FIBROMYALGIA
     Dosage: 225 MG, 2X/DAY
     Dates: start: 201209
  2. CLARITIN [Concomitant]
     Indication: HYPERSENSITIVITY
     Dosage: 10MG DAILY
  3. IRON [Concomitant]
     Indication: ANAEMIA
     Dosage: 325MG DAILY
  4. MAGNESIUM [Concomitant]
     Indication: FIBROMYALGIA
     Dosage: 400MG DAILY

REACTIONS (6)
  - Drug dose omission [Unknown]
  - Influenza like illness [Unknown]
  - Nausea [Unknown]
  - Dizziness [Unknown]
  - Somnolence [Unknown]
  - Malaise [Unknown]
